FAERS Safety Report 5532534-0 (Version None)
Quarter: 2007Q4

REPORT INFORMATION
  Report Type: 
  Country: None (occurrence: None)
  Receive Date: 20071203
  Receipt Date: 20071108
  Transmission Date: 20080405
  Serious: No
  Sender: FDA-Public Use
  Company Number: US-BOEHRINGER INGELHEIM PHARMACEUTICALS, INC.-2007-BP-23669BP

PATIENT
  Age: 41 Year
  Sex: Female

DRUGS (7)
  1. ZANTAC COOL MINT (TABLETS) [Suspect]
     Indication: ADVERSE DRUG REACTION
     Route: 048
     Dates: start: 20071001, end: 20071001
  2. ZANTAC COOL MINT (TABLETS) [Suspect]
     Indication: PROPHYLAXIS AGAINST DIARRHOEA
  3. INDOMETHACIN [Suspect]
  4. LISINOPRIL [Concomitant]
     Indication: HYPERTENSION
  5. BIRTH CONTROL [Concomitant]
  6. TRIVORA-21 [Concomitant]
  7. LISINOPRIL AND HYDROCHLOROTHIAZIDE [Concomitant]

REACTIONS (3)
  - ABDOMINAL PAIN UPPER [None]
  - DRUG INEFFECTIVE [None]
  - HYPERHIDROSIS [None]
